FAERS Safety Report 11889272 (Version 1)
Quarter: 2016Q1

REPORT INFORMATION
  Report Type: Spontaneous
  Country: US (occurrence: None)
  Receive Date: 20160104
  Receipt Date: 20160104
  Transmission Date: 20160526
  Serious: No
  Sender: FDA-Public Use
  Company Number: None

PATIENT
  Age: 38 Year
  Sex: Female
  Weight: 72.58 kg

DRUGS (4)
  1. NORCO [Concomitant]
     Active Substance: ACETAMINOPHEN\HYDROCODONE BITARTRATE
  2. METHOCARBAMOL. [Suspect]
     Active Substance: METHOCARBAMOL
     Indication: MUSCLE SPASMS
     Dosage: 1-3 TABLETS 4XDAILY FOUR TIMES DAILY TAKEN BY MOUTH
     Route: 048
     Dates: start: 20151220, end: 20151227
  3. MULTIVITAMIN [Concomitant]
     Active Substance: VITAMINS
  4. ZOLOFT [Concomitant]
     Active Substance: SERTRALINE HYDROCHLORIDE

REACTIONS (3)
  - Abnormal dreams [None]
  - Nightmare [None]
  - Insomnia [None]

NARRATIVE: CASE EVENT DATE: 20151220
